FAERS Safety Report 10246190 (Version 2)
Quarter: 2014Q2

REPORT INFORMATION
  Report Type: Spontaneous
  Country: US (occurrence: US)
  Receive Date: 20140619
  Receipt Date: 20140620
  Transmission Date: 20141212
  Serious: No
  Sender: FDA-Public Use
  Company Number: US-009507513-1406USA000098

PATIENT
  Sex: Female

DRUGS (1)
  1. OXYTROL FOR WOMEN [Suspect]
     Indication: PRODUCT USED FOR UNKNOWN INDICATION
     Dosage: UNK, UNKNOWN
     Route: 062
     Dates: start: 20140511

REACTIONS (8)
  - Constipation [Unknown]
  - Rash [Unknown]
  - Dry eye [Unknown]
  - Pruritus [Unknown]
  - Dry mouth [Unknown]
  - Erythema [Unknown]
  - Drug ineffective [Unknown]
  - Product quality issue [Unknown]
